FAERS Safety Report 4790455-5 (Version None)
Quarter: 2005Q4

REPORT INFORMATION
  Report Type: 
  Country: None (occurrence: None)
  Receive Date: 20051005
  Receipt Date: 20050919
  Transmission Date: 20060501
  Serious: Yes (Hospitalization)
  Sender: FDA-Public Use
  Company Number: USA0509108514

PATIENT
  Age: 25 Year
  Sex: Female

DRUGS (1)
  1. ZYPREXA [Suspect]
     Indication: MOOD SWINGS
     Dosage: 5 MG

REACTIONS (3)
  - DIABETES MELLITUS [None]
  - PANCREATIC CYST [None]
  - PANCREATITIS [None]
